FAERS Safety Report 8278111-2 (Version None)
Quarter: 2012Q2

REPORT INFORMATION
  Report Type: 
  Country: None (occurrence: None)
  Receive Date: 20120412
  Receipt Date: 20111207
  Transmission Date: 20120825
  Serious: No
  Sender: FDA-Public Use
  Company Number: US-ASTRAZENECA-2008UW26797

PATIENT
  Age: 65 Year
  Sex: Female
  Weight: 81.2 kg

DRUGS (6)
  1. ALTACE [Concomitant]
  2. PRILOSEC [Concomitant]
  3. NEXIUM [Suspect]
     Indication: GASTROOESOPHAGEAL REFLUX DISEASE
     Route: 048
     Dates: end: 20081122
  4. CRESTOR [Concomitant]
  5. PRILOSEC OTC [Concomitant]
  6. LEXAPRO [Concomitant]

REACTIONS (5)
  - SENSATION OF FOREIGN BODY [None]
  - SINUSITIS [None]
  - DRUG DOSE OMISSION [None]
  - NASOPHARYNGITIS [None]
  - GASTROOESOPHAGEAL REFLUX DISEASE [None]
